FAERS Safety Report 17577522 (Version 2)
Quarter: 2020Q1

REPORT INFORMATION
  Report Type: Report from Study
  Country: CO (occurrence: CO)
  Receive Date: 20200324
  Receipt Date: 20200326
  Transmission Date: 20200409
  Serious: Yes (Other)
  Sender: FDA-Public Use
  Company Number: NVSC2020CO072283

PATIENT
  Sex: Female
  Weight: 43 kg

DRUGS (3)
  1. EXEMESIN [Suspect]
     Active Substance: EXEMESTANE
     Indication: BREAST CANCER
     Dosage: 25 MG, QD
     Route: 048
  2. ENOXAPARIN [Concomitant]
     Active Substance: ENOXAPARIN
     Indication: ANTICOAGULANT THERAPY
     Dosage: 40 MG, BID
     Route: 065
  3. AFINITOR [Suspect]
     Active Substance: EVEROLIMUS
     Indication: BREAST CANCER
     Dosage: 10 MG, QD
     Route: 048
     Dates: start: 201907

REACTIONS (9)
  - Breast cancer [Unknown]
  - Pleural effusion [Unknown]
  - Quality of life decreased [Unknown]
  - Drug ineffective [Unknown]
  - Cough [Unknown]
  - Malignant neoplasm progression [Unknown]
  - Malaise [Unknown]
  - Weight decreased [Unknown]
  - Arthralgia [Unknown]
